FAERS Safety Report 7982304-9 (Version None)
Quarter: 2011Q4

REPORT INFORMATION
  Report Type: 
  Country: None (occurrence: None)
  Receive Date: 20111215
  Receipt Date: 20111201
  Transmission Date: 20120403
  Serious: Yes (Hospitalization, Other)
  Sender: FDA-Public Use
  Company Number: PHFR2011GB00491

PATIENT
  Sex: Male

DRUGS (7)
  1. AMISULPRIDE [Suspect]
     Dosage: 1200 MG DAILY
     Route: 048
  2. HYOSCINE [Concomitant]
     Dosage: 600 MG DAILY
     Route: 048
  3. CLOZARIL [Suspect]
     Indication: SCHIZOPHRENIA
     Dosage: 350 MG DAILY
     Route: 048
     Dates: start: 20031111, end: 20110102
  4. VALPROATE SODIUM [Concomitant]
  5. LANSOPRAZOLE [Concomitant]
     Dosage: 20 MG DAILY
     Route: 048
  6. CLOZARIL [Suspect]
     Route: 048
     Dates: start: 20110520, end: 20110617
  7. CLOZARIL [Suspect]
     Route: 048
     Dates: start: 20110618

REACTIONS (12)
  - MUTISM [None]
  - SCHIZOPHRENIA, CATATONIC TYPE [None]
  - NEUROLEPTIC MALIGNANT SYNDROME [None]
  - RENAL IMPAIRMENT [None]
  - MUSCLE RIGIDITY [None]
  - WHITE BLOOD CELL COUNT DECREASED [None]
  - GENERAL PHYSICAL HEALTH DETERIORATION [None]
  - HYPERHIDROSIS [None]
  - NEUTROPHIL COUNT DECREASED [None]
  - BLOOD CREATINE PHOSPHOKINASE INCREASED [None]
  - MENTAL IMPAIRMENT [None]
  - NEUTROPENIA [None]
